FAERS Safety Report 7171178-4 (Version None)
Quarter: 2010Q4

REPORT INFORMATION
  Report Type: 
  Country: None (occurrence: None)
  Receive Date: 20101217
  Receipt Date: 20101210
  Transmission Date: 20110411
  Serious: Yes (Hospitalization)
  Sender: FDA-Public Use
  Company Number: BR-ASTRAZENECA-2010SE58976

PATIENT
  Age: 63 Year
  Sex: Male

DRUGS (8)
  1. BUDECORT AQUA [Suspect]
     Route: 045
     Dates: start: 20101116
  2. CETIRIZINE HYDROCLORIDE [Concomitant]
     Route: 048
     Dates: start: 20101116
  3. FORASEQ [Concomitant]
     Indication: ASTHMA
  4. FORASEQ [Concomitant]
     Indication: BRONCHITIS
  5. SPIRIVA [Concomitant]
     Indication: ASTHMA
  6. SPIRIVA [Concomitant]
     Indication: BRONCHITIS
  7. DUOVENT [Concomitant]
     Indication: ASTHMA
     Route: 048
     Dates: start: 20050101
  8. DUOVENT [Concomitant]
     Indication: BRONCHITIS
     Route: 048
     Dates: start: 20050101

REACTIONS (1)
  - PNEUMONIA [None]
